FAERS Safety Report 26189923 (Version 1)
Quarter: 2025Q4

REPORT INFORMATION
  Report Type: Spontaneous
  Country: US (occurrence: US)
  Receive Date: 20251223
  Receipt Date: 20251223
  Transmission Date: 20260118
  Serious: Yes (Hospitalization, Other)
  Sender: Otter
  Company Number: US-OTTER-US-2025AST000258

PATIENT

DRUGS (1)
  1. METHOTREXATE [Suspect]
     Active Substance: METHOTREXATE
     Indication: Product used for unknown indication
     Dosage: UNK, UNK
     Route: 065

REACTIONS (7)
  - Pulmonary hypertension [Unknown]
  - Fall [Unknown]
  - Radius fracture [Unknown]
  - Acute respiratory failure [Unknown]
  - Interstitial lung disease [Unknown]
  - Toxicity to various agents [Unknown]
  - Off label use [Unknown]
